FAERS Safety Report 6108486-1 (Version None)
Quarter: 2009Q1

REPORT INFORMATION
  Report Type: 
  Country: None (occurrence: None)
  Receive Date: 20090309
  Receipt Date: 20090305
  Transmission Date: 20090719
  Serious: Yes (Other)
  Sender: FDA-Public Use
  Company Number: US-B.I. PHARMACEUTICALS,INC./RIDGEFIELD-2009-BP-00558BP

PATIENT
  Sex: Male

DRUGS (8)
  1. FLOMAX [Suspect]
     Indication: BENIGN PROSTATIC HYPERPLASIA
     Dosage: .4MG
     Route: 048
     Dates: start: 19990930, end: 20081122
  2. FLOMAX [Suspect]
     Indication: PROSTATIC SPECIFIC ANTIGEN INCREASED
  3. LIPITOR [Suspect]
     Indication: BLOOD CHOLESTEROL INCREASED
  4. WARFARIN SODIUM [Concomitant]
     Indication: HEART VALVE REPLACEMENT
  5. SYNTHROID [Concomitant]
     Indication: HYPOTHYROIDISM
  6. PROTONIX [Concomitant]
     Indication: GASTROOESOPHAGEAL REFLUX DISEASE
  7. LEVOXYL [Concomitant]
  8. FOSAMAX [Concomitant]

REACTIONS (4)
  - ASTHENIA [None]
  - DIZZINESS [None]
  - PROSTATE CANCER [None]
  - PROSTATIC SPECIFIC ANTIGEN INCREASED [None]
